FAERS Safety Report 10686670 (Version 6)
Quarter: 2016Q1

REPORT INFORMATION
  Report Type: Report from Study
  Country: JP (occurrence: JP)
  Receive Date: 20150101
  Receipt Date: 20160311
  Transmission Date: 20160525
  Serious: Yes (Other)
  Sender: FDA-Public Use
  Company Number: JP-ALEXION PHARMACEUTICALS INC.-A201403216

PATIENT
  Age: 3 Year
  Sex: Male
  Weight: 9 kg

DRUGS (7)
  1. LONGES [Concomitant]
     Active Substance: LISINOPRIL
     Indication: HYPERTENSION
     Dosage: 2.5 MG, QD
     Route: 048
     Dates: start: 20140106, end: 20140714
  2. LONGES [Concomitant]
     Active Substance: LISINOPRIL
     Dosage: 4 MG, QD
     Route: 048
     Dates: start: 20140918
  3. SOLIRIS [Suspect]
     Active Substance: ECULIZUMAB
     Dosage: 300 MG, Q3W
     Route: 042
     Dates: start: 20130529
  4. AMLODIN [Concomitant]
     Active Substance: AMLODIPINE BESYLATE
     Dosage: 1.25 MG, BID
     Route: 048
     Dates: start: 20140424
  5. SOLIRIS [Suspect]
     Active Substance: ECULIZUMAB
     Indication: HAEMOLYTIC URAEMIC SYNDROME
     Dosage: 300 MG, QW
     Route: 042
     Dates: start: 20130522
  6. LONGES [Concomitant]
     Active Substance: LISINOPRIL
     Dosage: 3 MG, QD
     Route: 048
     Dates: start: 20140715, end: 20140907
  7. AMLODIN [Concomitant]
     Active Substance: AMLODIPINE BESYLATE
     Indication: HYPERTENSION
     Dosage: 1.5 MG, QD
     Route: 048
     Dates: start: 20140402, end: 20140423

REACTIONS (2)
  - Hypertension [Not Recovered/Not Resolved]
  - Device related infection [Recovered/Resolved]

NARRATIVE: CASE EVENT DATE: 20130524
